FAERS Safety Report 10479745 (Version 1)
Quarter: 2014Q3

REPORT INFORMATION
  Report Type: Report from Study
  Country: US (occurrence: US)
  Receive Date: 20140927
  Receipt Date: 20140927
  Transmission Date: 20150326
  Serious: Yes (Other)
  Sender: FDA-Public Use
  Company Number: US-ALEXION PHARMACEUTICALS INC-A201102469

PATIENT
  Age: 64 Year
  Sex: Female

DRUGS (1)
  1. SOLIRIS [Suspect]
     Active Substance: ECULIZUMAB
     Indication: PAROXYSMAL NOCTURNAL HAEMOGLOBINURIA
     Dosage: 1200 MG, Q2W
     Route: 042
     Dates: start: 201203

REACTIONS (11)
  - Vessel puncture site bruise [Unknown]
  - Arthritis [Unknown]
  - Myalgia [Unknown]
  - Headache [Unknown]
  - Fatigue [Unknown]
  - Central venous catheterisation [Unknown]
  - Quality of life decreased [Unknown]
  - Blood lactate dehydrogenase increased [Unknown]
  - Malaise [Unknown]
  - Animal bite [Unknown]
  - Infection [Unknown]

NARRATIVE: CASE EVENT DATE: 20111206
